FAERS Safety Report 5365067-5 (Version None)
Quarter: 2007Q2

REPORT INFORMATION
  Report Type: 
  Country: None (occurrence: None)
  Receive Date: 20070530
  Receipt Date: 20070316
  Transmission Date: 20071010
  Serious: No
  Sender: FDA-Public Use
  Company Number: 2006PV014033

PATIENT
  Age: 61 Year
  Sex: Female
  Weight: 98.8842 kg

DRUGS (7)
  1. BYETTA [Suspect]
     Indication: DIABETES MELLITUS NON-INSULIN-DEPENDENT
     Dosage: 10 MCG; BID; SC
     Route: 058
     Dates: end: 20070201
  2. AMARYL [Concomitant]
  3. JANUVIA [Concomitant]
  4. INSULIN [Concomitant]
  5. AVANDIA [Concomitant]
  6. GLUCOPHAGE [Concomitant]
  7. TOPROL-XL [Concomitant]

REACTIONS (2)
  - UNEVALUABLE EVENT [None]
  - WEIGHT DECREASED [None]
